FAERS Safety Report 18289262 (Version 1)
Quarter: 2020Q3

REPORT INFORMATION
  Report Type: Spontaneous
  Country: US (occurrence: US)
  Receive Date: 20200921
  Receipt Date: 20200921
  Transmission Date: 20201103
  Serious: No
  Sender: FDA-Public Use
  Company Number: None

PATIENT
  Age: 53 Year
  Sex: Female
  Weight: 66.15 kg

DRUGS (4)
  1. MELOXICAM 15MG [Suspect]
     Active Substance: MELOXICAM
     Indication: CARPAL TUNNEL SYNDROME
     Dosage: ?          QUANTITY:60 TABLET(S);?
     Route: 048
     Dates: start: 20200917, end: 20200920
  2. LOSARTAN. [Concomitant]
     Active Substance: LOSARTAN
  3. MULTI VITAMINS [Concomitant]
     Active Substance: VITAMINS
  4. VITAMIN C [Concomitant]
     Active Substance: ASCORBIC ACID

REACTIONS (8)
  - Vision blurred [None]
  - Musculoskeletal stiffness [None]
  - Visual impairment [None]
  - Hyperhidrosis [None]
  - Dizziness [None]
  - Chest pain [None]
  - Pain in extremity [None]
  - Diarrhoea [None]

NARRATIVE: CASE EVENT DATE: 20200917
